FAERS Safety Report 16094196 (Version 1)
Quarter: 2019Q2

REPORT INFORMATION
  Report Type: Spontaneous
  Country: US (occurrence: US)
  Receive Date: 20190319
  Receipt Date: 20190319
  Transmission Date: 20190711
  Serious: No
  Sender: FDA-Public Use
  Company Number: None

PATIENT

DRUGS (1)
  1. PHENTERMINE 37.5MG TABLET [Suspect]
     Active Substance: PHENTERMINE
     Dates: start: 20170802, end: 20190123

REACTIONS (1)
  - Drug ineffective [None]
